FAERS Safety Report 8435549-8 (Version None)
Quarter: 2012Q2

REPORT INFORMATION
  Report Type: 
  Country: None (occurrence: None)
  Receive Date: 20120614
  Receipt Date: 20120427
  Transmission Date: 20120825
  Serious: Yes (Death, Life-Threatening)
  Sender: FDA-Public Use
  Company Number: AU-ASTRAZENECA-2012SE27508

PATIENT
  Age: 23627 Day
  Sex: Male

DRUGS (6)
  1. LEFLUNOMIDE [Suspect]
     Route: 048
     Dates: end: 20111102
  2. HYDROXYCHLOROQUINE SULFATE [Suspect]
     Route: 065
  3. PREDNISOLONE [Suspect]
     Route: 065
  4. ZOLADEX [Suspect]
     Route: 058
  5. PERINDOPRIL ERBUMINE [Concomitant]
  6. VITAMIN D [Concomitant]

REACTIONS (1)
  - SMALL CELL LUNG CANCER STAGE UNSPECIFIED [None]
